FAERS Safety Report 11822441 (Version 1)
Quarter: 2015Q4

REPORT INFORMATION
  Report Type: Spontaneous
  Country: US (occurrence: US)
  Receive Date: 20151210
  Receipt Date: 20151210
  Transmission Date: 20160305
  Serious: No
  Sender: FDA-Public Use
  Company Number: US-JNJFOC-20150320870

PATIENT
  Age: 76 Year
  Sex: Male
  Weight: 111 kg

DRUGS (4)
  1. XALATAN [Concomitant]
     Active Substance: LATANOPROST
     Route: 047
  2. IMBRUVICA [Suspect]
     Active Substance: IBRUTINIB
     Indication: WALDENSTROM^S MACROGLOBULINAEMIA
     Route: 048
     Dates: start: 20150317
  3. NORMAL SALINE [Concomitant]
     Active Substance: SODIUM CHLORIDE
     Dosage: 2 GTT, QD
     Route: 047
  4. NEURONTIN [Concomitant]
     Active Substance: GABAPENTIN
     Dosage: 300MG QHS
     Route: 048

REACTIONS (18)
  - Pain [Unknown]
  - Agitation [Recovered/Resolved]
  - Nausea [Not Recovered/Not Resolved]
  - Musculoskeletal discomfort [Unknown]
  - Flatulence [Recovered/Resolved]
  - Red blood cell count decreased [Unknown]
  - Blood alkaline phosphatase increased [Unknown]
  - Hypertension [Recovered/Resolved]
  - Alanine aminotransferase increased [Unknown]
  - Rash [Recovered/Resolved]
  - Peripheral swelling [Unknown]
  - Contusion [Recovered/Resolved]
  - Defaecation urgency [Not Recovered/Not Resolved]
  - Photosensitivity reaction [Unknown]
  - Transaminases increased [Unknown]
  - Blood urea increased [Unknown]
  - Dyspepsia [Not Recovered/Not Resolved]
  - Eructation [Recovering/Resolving]

NARRATIVE: CASE EVENT DATE: 2015
